FAERS Safety Report 5731047-0 (Version None)
Quarter: 2008Q2

REPORT INFORMATION
  Report Type: 
  Country: None (occurrence: None)
  Receive Date: 20080507
  Receipt Date: 20071107
  Transmission Date: 20081010
  Serious: Yes (Other)
  Sender: FDA-Public Use
  Company Number: BR-MERCK-0711USA02152

PATIENT
  Sex: Male

DRUGS (1)
  1. IVOMEC [Suspect]
     Indication: DRUG ADMINISTRATION ERROR
     Route: 048

REACTIONS (4)
  - ACCIDENTAL EXPOSURE [None]
  - GASTROINTESTINAL DISORDER [None]
  - SUICIDE ATTEMPT [None]
  - VOMITING [None]
